FAERS Safety Report 7137605-3 (Version None)
Quarter: 2010Q4

REPORT INFORMATION
  Report Type: 
  Country: None (occurrence: None)
  Receive Date: 20101102
  Receipt Date: 20100802
  Transmission Date: 20110411
  Serious: Yes (Other)
  Sender: FDA-Public Use
  Company Number: 240433USA

PATIENT
  Sex: Male

DRUGS (7)
  1. LEVETIRACETAM [Suspect]
     Dosage: (1000 MG)
  2. ALPRAZOLAM [Concomitant]
  3. DONEPEZIL HYDROCHLORIDE [Concomitant]
  4. MEMANTINE HYDROCHLORIDE [Concomitant]
  5. PANTOPRAZOLE [Concomitant]
  6. CALCIUM [Concomitant]
  7. MULTI-VITAMINS [Concomitant]

REACTIONS (1)
  - CONVULSION [None]
